FAERS Safety Report 20920794 (Version 3)
Quarter: 2022Q3

REPORT INFORMATION
  Report Type: Spontaneous
  Country: US (occurrence: US)
  Receive Date: 20220606
  Receipt Date: 20220919
  Transmission Date: 20221026
  Serious: No
  Sender: FDA-Public Use
  Company Number: US-BRISTOL-MYERS SQUIBB COMPANY-2022-038342

PATIENT
  Age: 75 Year
  Sex: Female

DRUGS (3)
  1. REVLIMID [Suspect]
     Active Substance: LENALIDOMIDE
     Indication: Plasma cell myeloma
     Route: 048
     Dates: start: 20220330
  2. REVLIMID [Suspect]
     Active Substance: LENALIDOMIDE
     Dosage: BATCH NUMBER- A3639A?EXPIRY DATE- 30-APR-2024
     Route: 048
     Dates: start: 20220829
  3. REVLIMID [Suspect]
     Active Substance: LENALIDOMIDE
     Route: 065

REACTIONS (5)
  - Back pain [Unknown]
  - Rash [Unknown]
  - Peripheral swelling [Unknown]
  - Trigger finger [Unknown]
  - Weight decreased [Unknown]
